FAERS Safety Report 10615335 (Version 1)
Quarter: 2014Q4

REPORT INFORMATION
  Report Type: Spontaneous
  Country: US (occurrence: US)
  Receive Date: 20141201
  Receipt Date: 20141201
  Transmission Date: 20150529
  Serious: No
  Sender: FDA-Public Use
  Company Number: US-PFIZER INC-2014324411

PATIENT
  Age: 72 Year
  Sex: Male
  Weight: 100 kg

DRUGS (18)
  1. JANUMET [Concomitant]
     Active Substance: METFORMIN HYDROCHLORIDE\SITAGLIPTIN PHOSPHATE
     Indication: DIABETES MELLITUS
     Dosage: UNK (STRENGTH: 1000 MG/50 MG) TWICE DAILY
     Route: 048
  2. REQUIP [Concomitant]
     Active Substance: ROPINIROLE HYDROCHLORIDE
     Indication: RESTLESS LEGS SYNDROME
     Dosage: UNK (ONE TO TWO A DAY)
  3. OMEPRAZOLE. [Concomitant]
     Active Substance: OMEPRAZOLE
     Indication: ABDOMINAL DISCOMFORT
     Dosage: 20 MG, ONCE A DAY
  4. LEVEMIR [Concomitant]
     Active Substance: INSULIN DETEMIR
     Indication: DIABETES MELLITUS
     Dosage: 40 MG, ONCE A DAY
  5. NOVOLOG [Concomitant]
     Active Substance: INSULIN ASPART
     Dosage: UNK
  6. CLOTRIMAZOLE. [Concomitant]
     Active Substance: CLOTRIMAZOLE
     Indication: FUNGAL INFECTION
     Dosage: UNK, TWICE DAILY
  7. ENBREL [Suspect]
     Active Substance: ETANERCEPT
     Dosage: UNK
  8. ATENOLOL. [Concomitant]
     Active Substance: ATENOLOL
     Indication: BLOOD PRESSURE ABNORMAL
     Dosage: 25 MG, ONCE A DAY
  9. XYZAL [Concomitant]
     Active Substance: LEVOCETIRIZINE DIHYDROCHLORIDE
     Indication: HYPERSENSITIVITY
     Dosage: 5 MG, ONCE A DAY
  10. INVOKANA [Concomitant]
     Active Substance: CANAGLIFLOZIN
     Indication: DIABETES MELLITUS
     Dosage: 300 MG, ONCE A DAY
     Route: 048
  11. PERCOCET [Concomitant]
     Active Substance: ACETAMINOPHEN\OXYCODONE HYDROCHLORIDE
     Indication: PAIN
     Dosage: UNK (STRENGTH: 10/325 MG), TWO TO FOUR TIMES DAILY
  12. CHONDROITIN SULFATE (BOVINE)\GLUCOSAMINE SULFATE [Concomitant]
     Active Substance: CHONDROITIN SULFATE (BOVINE)\GLUCOSAMINE SULFATE
     Indication: PAIN
     Dosage: UNK (1800/75 MG BLEND TWO TABLET), ONCE A DAY
  13. PRAVASTATIN [Concomitant]
     Active Substance: PRAVASTATIN\PRAVASTATIN SODIUM
     Indication: BLOOD CHOLESTEROL ABNORMAL
     Dosage: 40 MG, ONCE A DAY
  14. GLIPIZIDE. [Concomitant]
     Active Substance: GLIPIZIDE
     Indication: DIABETES MELLITUS
     Dosage: 10 MG, ONCE A DAY
     Route: 048
  15. PHENTERMINE [Concomitant]
     Active Substance: PHENTERMINE
     Dosage: 37.5 MG, UNK
  16. LYRICA [Suspect]
     Active Substance: PREGABALIN
     Indication: DIABETIC NEUROPATHY
     Dosage: 300 MG, TWICE A DAY
  17. TYLENOL [Concomitant]
     Active Substance: ACETAMINOPHEN
     Indication: ARTHRALGIA
     Dosage: 650 MG, TWICE A DAY
  18. LISINOPRIL. [Concomitant]
     Active Substance: LISINOPRIL
     Indication: BLOOD PRESSURE ABNORMAL
     Dosage: 40 MG, ONCE A DAY

REACTIONS (4)
  - Fungal infection [Unknown]
  - Weight increased [Unknown]
  - Dizziness [Unknown]
  - Fatigue [Unknown]
